FAERS Safety Report 19680568 (Version 2)
Quarter: 2021Q3

REPORT INFORMATION
  Report Type: Report from Study
  Country: RU (occurrence: RU)
  Receive Date: 20210810
  Receipt Date: 20210906
  Transmission Date: 20211014
  Serious: Yes (Other)
  Sender: FDA-Public Use
  Company Number: RU-SA-2021SA262191

PATIENT
  Age: 35 Year
  Sex: Male
  Weight: 110 kg

DRUGS (1)
  1. ALEMTUZUMAB [Suspect]
     Active Substance: ALEMTUZUMAB
     Indication: MULTIPLE SCLEROSIS
     Dosage: UNK
     Route: 042

REACTIONS (2)
  - Oral herpes [Recovered/Resolved]
  - Immunodeficiency [Recovered/Resolved]

NARRATIVE: CASE EVENT DATE: 202107
